FAERS Safety Report 23417393 (Version 1)
Quarter: 2024Q1

REPORT INFORMATION
  Report Type: Spontaneous
  Country: US (occurrence: US)
  Receive Date: 20240118
  Receipt Date: 20240118
  Transmission Date: 20240410
  Serious: No
  Sender: FDA-Public Use
  Company Number: US-SK LIFE SCIENCE, INC-SKPVG-2023-001012

PATIENT

DRUGS (2)
  1. XCOPRI [Suspect]
     Active Substance: CENOBAMATE
     Indication: Product used for unknown indication
     Dosage: UNK
     Route: 065
     Dates: start: 202211
  2. XCOPRI [Suspect]
     Active Substance: CENOBAMATE
     Dosage: 200MG, TWICE A DAY, OR 400MG DAILY
     Route: 065

REACTIONS (1)
  - Somnolence [Unknown]
